FAERS Safety Report 22398327 (Version 2)
Quarter: 2023Q2

REPORT INFORMATION
  Report Type: Spontaneous
  Country: GB (occurrence: GB)
  Receive Date: 20230602
  Receipt Date: 20230615
  Transmission Date: 20230721
  Serious: Yes (Disabling)
  Sender: FDA-Public Use
  Company Number: GB-MHRA-MED-202305261543289430-WYRQC

PATIENT
  Sex: Female

DRUGS (1)
  1. VABYSMO [Suspect]
     Active Substance: FARICIMAB-SVOA
     Indication: Neovascular age-related macular degeneration
     Route: 065

REACTIONS (2)
  - Disease recurrence [Not Recovered/Not Resolved]
  - Retinal haemorrhage [Unknown]

NARRATIVE: CASE EVENT DATE: 20230423
